FAERS Safety Report 6693383-3 (Version None)
Quarter: 2010Q2

REPORT INFORMATION
  Report Type: 
  Country: None (occurrence: None)
  Receive Date: 20100420
  Receipt Date: 20100407
  Transmission Date: 20101027
  Serious: Yes (Death)
  Sender: FDA-Public Use
  Company Number: DSU-2010-01476

PATIENT
  Age: 75 Year
  Sex: Male

DRUGS (2)
  1. AZOR [Suspect]
     Indication: HYPERTENSION
     Dosage: 5/20MG (QD), PER ORAL
     Route: 048
     Dates: start: 20091117
  2. LISINOPRIL [Concomitant]

REACTIONS (1)
  - HEPATIC FAILURE [None]
